FAERS Safety Report 10074694 (Version 1)
Quarter: 2014Q2

REPORT INFORMATION
  Report Type: Report from Study
  Country: JP (occurrence: JP)
  Receive Date: 20140414
  Receipt Date: 20140414
  Transmission Date: 20141212
  Serious: Yes (Death)
  Sender: FDA-Public Use
  Company Number: JP-ROCHE-1377249

PATIENT
  Sex: Male
  Weight: 59 kg

DRUGS (14)
  1. METHOXY POLYETHYLENE GLYCOL-EPOETIN BETA [Suspect]
     Indication: NEPHROGENIC ANAEMIA
     Route: 042
     Dates: start: 20120224, end: 20121116
  2. FESIN (JAPAN) [Concomitant]
     Indication: DIABETIC NEPHROPATHY
     Route: 042
     Dates: start: 20120224, end: 20121116
  3. CEFTAZIDIME [Concomitant]
     Route: 042
     Dates: start: 20120921, end: 20120926
  4. VANCOMYCIN [Concomitant]
     Route: 042
     Dates: start: 20120921, end: 20120926
  5. LIVALO [Concomitant]
     Route: 048
     Dates: start: 20110606, end: 20130125
  6. FOSRENOL [Concomitant]
     Route: 048
     Dates: start: 20110713, end: 20130125
  7. ATELEC [Concomitant]
     Route: 048
     Dates: start: 20110606, end: 20120322
  8. PROMAC (JAPAN) [Concomitant]
     Route: 048
     Dates: start: 20110606, end: 20130125
  9. LENDORMIN D [Concomitant]
     Route: 048
     Dates: start: 20110606, end: 20130125
  10. FERROMIA [Concomitant]
     Indication: DIABETIC NEPHROPATHY
     Route: 048
     Dates: start: 20110114, end: 20120224
  11. NESINA [Concomitant]
     Route: 048
     Dates: start: 20120224, end: 20120629
  12. EQUA [Concomitant]
     Route: 048
     Dates: start: 20120720, end: 20130126
  13. ROCALTROL [Concomitant]
     Route: 048
     Dates: start: 20120224, end: 20130125
  14. MICARDIS [Concomitant]
     Route: 048
     Dates: start: 20120329, end: 20130125

REACTIONS (1)
  - Death [Fatal]
